FAERS Safety Report 16962155 (Version 8)
Quarter: 2020Q3

REPORT INFORMATION
  Report Type: Spontaneous
  Country: PT (occurrence: PT)
  Receive Date: 20191025
  Receipt Date: 20200722
  Transmission Date: 20201102
  Serious: Yes (Life-Threatening, Hospitalization, Other)
  Sender: FDA-Public Use
  Company Number: PT-JNJFOC-20191020468

PATIENT
  Age: 80 Year
  Sex: Female

DRUGS (3)
  1. RISPERIDONE. [Suspect]
     Active Substance: RISPERIDONE
     Indication: AFFECTIVE DISORDER
     Dosage: UNK
     Route: 065
  2. FLUOXETINE [Concomitant]
     Active Substance: FLUOXETINE HYDROCHLORIDE
     Indication: AFFECTIVE DISORDER
     Route: 065
  3. HALDOL [Suspect]
     Active Substance: HALOPERIDOL
     Indication: AFFECTIVE DISORDER
     Dosage: UNK
     Route: 065

REACTIONS (11)
  - Impaired gastric emptying [Recovered/Resolved]
  - Hyponatraemia [Recovered/Resolved]
  - Neuroleptic malignant syndrome [Recovering/Resolving]
  - Tremor [Recovered/Resolved]
  - Seizure [Recovered/Resolved]
  - Apathy [Recovered/Resolved]
  - Musculoskeletal stiffness [Recovered/Resolved]
  - Tongue biting [Recovered/Resolved]
  - Hypokalaemia [Recovered/Resolved]
  - Muscle enzyme increased [Recovered/Resolved]
  - Pyrexia [Recovered/Resolved]
